FAERS Safety Report 7490529-4 (Version None)
Quarter: 2011Q2

REPORT INFORMATION
  Report Type: 
  Country: None (occurrence: None)
  Receive Date: 20110512
  Receipt Date: 20110427
  Transmission Date: 20111010
  Serious: Yes (Other)
  Sender: FDA-Public Use
  Company Number: AUR-APL-2011-01535

PATIENT
  Age: 34 Year
  Sex: Male

DRUGS (5)
  1. SAPHRIS [Suspect]
     Indication: SCHIZOAFFECTIVE DISORDER BIPOLAR TYPE
     Dosage: 10MG-QOHS-QHS-SUBLINGUAL
     Route: 060
     Dates: start: 20110113, end: 20110203
  2. SEROQUEL [Concomitant]
  3. VENLAFAXINE HCL EXTENDED-RELEASE [Suspect]
     Dosage: 225MG
     Dates: start: 20110124
  4. GEODON [Suspect]
  5. VENLAFAXINE [Concomitant]

REACTIONS (13)
  - FATIGUE [None]
  - PSYCHOMOTOR HYPERACTIVITY [None]
  - DRUG INTOLERANCE [None]
  - DISORIENTATION [None]
  - MIDDLE INSOMNIA [None]
  - MIGRAINE [None]
  - NAUSEA [None]
  - INITIAL INSOMNIA [None]
  - PARANOIA [None]
  - VOMITING [None]
  - DIZZINESS [None]
  - TACHYPHRENIA [None]
  - FEELING ABNORMAL [None]
